FAERS Safety Report 19823721 (Version 3)
Quarter: 2021Q3

REPORT INFORMATION
  Report Type: Spontaneous
  Country: US (occurrence: US)
  Receive Date: 20210913
  Receipt Date: 20210924
  Transmission Date: 20211014
  Serious: No
  Sender: FDA-Public Use
  Company Number: US-ALXN-A202110038

PATIENT
  Sex: Male

DRUGS (4)
  1. SALINE                             /00075401/ [Suspect]
     Active Substance: SODIUM CHLORIDE
     Indication: RHINORRHOEA
     Dosage: UNK
     Route: 045
  2. SOLIRIS [Suspect]
     Active Substance: ECULIZUMAB
     Indication: MYASTHENIA GRAVIS
     Dosage: UNK, Q2W
     Route: 065
     Dates: start: 2020
  3. SALINE                             /00075401/ [Suspect]
     Active Substance: SODIUM CHLORIDE
     Indication: SINUSITIS
  4. SALINE                             /00075401/ [Suspect]
     Active Substance: SODIUM CHLORIDE
     Indication: NASAL DISCHARGE DISCOLOURATION

REACTIONS (4)
  - Sinusitis [Unknown]
  - Nasal discharge discolouration [Unknown]
  - Rhinorrhoea [Unknown]
  - Epistaxis [Unknown]
